FAERS Safety Report 8798790 (Version 1)
Quarter: 2012Q4

REPORT INFORMATION
  Report Type: Spontaneous
  Country: US (occurrence: None)
  Receive Date: 20120917
  Receipt Date: 20120917
  Transmission Date: 20130627
  Serious: Yes (Life-Threatening)
  Sender: FDA-Public Use
  Company Number: None

PATIENT
  Age: 83 Year
  Sex: Female
  Weight: 84.3 kg

DRUGS (7)
  1. LEVAQUIN [Suspect]
     Indication: DIARRHEA
     Route: 042
     Dates: start: 20120828, end: 20120905
  2. LEVAQUIN [Suspect]
     Indication: NAUSEA
     Route: 042
     Dates: start: 20120828, end: 20120905
  3. LEVAQUIN [Suspect]
     Indication: VOMITING
     Route: 042
     Dates: start: 20120828, end: 20120905
  4. LEVAQUIN [Suspect]
     Indication: DIARRHEA
     Dates: start: 20120909, end: 20120914
  5. LEVAQUIN [Suspect]
     Indication: NAUSEA
     Dates: start: 20120909, end: 20120914
  6. LEVAQUIN [Suspect]
     Indication: VOMITING
     Dates: start: 20120909, end: 20120914
  7. LEVOFLOXACIN [Concomitant]

REACTIONS (1)
  - Liver injury [None]
